FAERS Safety Report 9096634 (Version 1)
Quarter: 2013Q1

REPORT INFORMATION
  Report Type: Spontaneous
  Country: AR (occurrence: AR)
  Receive Date: 20130211
  Receipt Date: 20130211
  Transmission Date: 20140127
  Serious: Yes (Other)
  Sender: FDA-Public Use
  Company Number: PHHY2013AR012601

PATIENT
  Sex: Female

DRUGS (1)
  1. DIOVAN [Suspect]
     Indication: BLOOD PRESSURE INADEQUATELY CONTROLLED
     Dosage: 0.5 DF PER DAY
     Route: 048

REACTIONS (3)
  - Diffuse large B-cell lymphoma [Recovered/Resolved]
  - Wrong technique in drug usage process [Unknown]
  - Asthenia [Recovering/Resolving]
